FAERS Safety Report 12417716 (Version 1)
Quarter: 2016Q2

REPORT INFORMATION
  Report Type: Report from Study
  Country: CA (occurrence: CA)
  Receive Date: 20160530
  Receipt Date: 20160530
  Transmission Date: 20160815
  Serious: Yes (Death)
  Sender: FDA-Public Use
  Company Number: PHHY2015CA155966

PATIENT
  Age: 74 Year
  Sex: Male

DRUGS (2)
  1. SANDOSTATIN LAR DEPOT [Suspect]
     Active Substance: OCTREOTIDE ACETATE
     Indication: PANCREATIC NEUROENDOCRINE TUMOUR
  2. SANDOSTATIN LAR DEPOT [Suspect]
     Active Substance: OCTREOTIDE ACETATE
     Indication: CARCINOID TUMOUR
     Dosage: 30 MG, QMO (EVERY 4 WEEKS)
     Route: 030
     Dates: start: 20100610, end: 20160504

REACTIONS (5)
  - Heart rate decreased [Unknown]
  - Skin haemorrhage [Unknown]
  - Death [Fatal]
  - Blood pressure systolic increased [Unknown]
  - Scab [Unknown]

NARRATIVE: CASE EVENT DATE: 20151214
